FAERS Safety Report 6123453-X (Version None)
Quarter: 2009Q1

REPORT INFORMATION
  Report Type: 
  Country: None (occurrence: None)
  Receive Date: 20090318
  Receipt Date: 20090309
  Transmission Date: 20090719
  Serious: No
  Sender: FDA-Public Use
  Company Number: US-B.I. PHARMACEUTICALS,INC./RIDGEFIELD-2009-BP-02981BP

PATIENT
  Sex: Female

DRUGS (10)
  1. MIRAPEX [Suspect]
  2. UNSPECIFIED MEDICATION [Concomitant]
     Indication: DIABETIC NEUROPATHY
     Route: 048
  3. SMOKING MEDICATION [Concomitant]
     Indication: TOBACCO USER
  4. METFORMIN HCL [Concomitant]
  5. GLYBURIDE COMBINATION [Concomitant]
  6. LASIX [Concomitant]
  7. LYRICA [Concomitant]
     Indication: DIABETIC NEUROPATHY
     Route: 048
  8. CYMBALTA [Concomitant]
  9. EFFEXOR [Concomitant]
  10. NEURONTIN [Concomitant]

REACTIONS (3)
  - ABDOMINAL DISCOMFORT [None]
  - LOSS OF CONSCIOUSNESS [None]
  - REFLUX GASTRITIS [None]
